FAERS Safety Report 24312892 (Version 3)
Quarter: 2025Q2

REPORT INFORMATION
  Report Type: Report from Study
  Country: US (occurrence: US)
  Receive Date: 20240912
  Receipt Date: 20250401
  Transmission Date: 20250717
  Serious: No
  Sender: AMGEN
  Company Number: US-AMGEN-USASL2024178214

PATIENT
  Age: 67 Year
  Sex: Female

DRUGS (1)
  1. NEULASTA [Suspect]
     Active Substance: PEGFILGRASTIM
     Indication: Breast cancer
     Dosage: 6 MILLIGRAM, Q3WK
     Route: 065

REACTIONS (3)
  - Device adhesion issue [Unknown]
  - Unintentional medical device removal [Unknown]
  - Device use error [Unknown]

NARRATIVE: CASE EVENT DATE: 20240827
